FAERS Safety Report 13066369 (Version 2)
Quarter: 2017Q1

REPORT INFORMATION
  Report Type: Spontaneous
  Country: US (occurrence: US)
  Receive Date: 20161227
  Receipt Date: 20170127
  Transmission Date: 20170428
  Serious: Yes (Hospitalization, Other)
  Sender: FDA-Public Use
  Company Number: US-BAYER-2016-242387

PATIENT
  Age: 31 Year
  Sex: Female

DRUGS (1)
  1. MIRENA [Suspect]
     Active Substance: LEVONORGESTREL
     Dosage: 20 MCG/24HR, CONT
     Route: 015
     Dates: start: 20131219

REACTIONS (7)
  - Deafness unilateral [None]
  - Depression [None]
  - Anxiety [None]
  - Vertigo [None]
  - Anxiety [None]
  - Injury [None]
  - Device issue [None]

NARRATIVE: CASE EVENT DATE: 20131224
